FAERS Safety Report 7724961-8 (Version None)
Quarter: 2011Q3

REPORT INFORMATION
  Report Type: 
  Country: None (occurrence: None)
  Receive Date: 20110901
  Receipt Date: 20110302
  Transmission Date: 20111222
  Serious: No
  Sender: FDA-Public Use
  Company Number: US-BAYER-2011-020659

PATIENT
  Age: 63 Year
  Sex: Male

DRUGS (7)
  1. ULTRAVIST 150 [Suspect]
     Indication: HAEMATURIA
     Dosage: 4CC/SEC
     Route: 042
     Dates: start: 20110301
  2. BENADRYL [Concomitant]
  3. BENADRYL [ACRIVASTINE] [Concomitant]
     Indication: PREMEDICATION
  4. ENALAPRIL MALEATE [Concomitant]
  5. LASIX [Concomitant]
     Indication: PREMEDICATION
  6. FOSAMAX [Concomitant]
  7. PRAVACHOL [Concomitant]

REACTIONS (2)
  - PRURITUS [None]
  - URTICARIA [None]
